FAERS Safety Report 19805586 (Version 3)
Quarter: 2023Q2

REPORT INFORMATION
  Report Type: Report from Study
  Country: AU (occurrence: AU)
  Receive Date: 20210909
  Receipt Date: 20230501
  Transmission Date: 20230722
  Serious: Yes (Death, Hospitalization, Other)
  Sender: FDA-Public Use
  Company Number: AU-AMGEN-AUSCT2019126051

PATIENT
  Age: 42 Year
  Sex: Male
  Weight: 69.5 kg

DRUGS (21)
  1. BLINATUMOMAB [Suspect]
     Active Substance: BLINATUMOMAB
     Indication: Diffuse large B-cell lymphoma
     Dosage: 56 MICROGRAM, QD
     Route: 042
     Dates: start: 20190704, end: 20190807
  2. PEMBROLIZUMAB [Suspect]
     Active Substance: PEMBROLIZUMAB
     Indication: Diffuse large B-cell lymphoma
     Dosage: 200 MILLIGRAM
     Route: 042
     Dates: start: 20190722, end: 20190807
  3. FENTANYL [Concomitant]
     Active Substance: FENTANYL
     Indication: Diffuse large B-cell lymphoma
     Dosage: 25-50 MICROGRAM
     Dates: start: 20190704, end: 20190806
  4. FENTANYL [Concomitant]
     Active Substance: FENTANYL
     Indication: Tumour pain
  5. PREGABALIN [Concomitant]
     Active Substance: PREGABALIN
     Dosage: 75 MILLIGRAM
     Route: 048
     Dates: start: 20170815, end: 20190812
  6. NALOXONE HYDROCHLORIDE\OXYCODONE HYDROCHLORIDE [Concomitant]
     Active Substance: NALOXONE HYDROCHLORIDE\OXYCODONE HYDROCHLORIDE
     Dosage: 1 UNK
     Route: 048
     Dates: start: 20190704, end: 20190708
  7. CALCIUM RESONIUM [Concomitant]
     Dosage: 15 GRAM
     Route: 048
     Dates: start: 20190708, end: 20190708
  8. LORAZEPAM [Concomitant]
     Active Substance: LORAZEPAM
     Dosage: 0.5 MILLIGRAM
     Route: 048
     Dates: start: 20190708, end: 20190709
  9. CALCIUM GLUCONATE [Concomitant]
     Active Substance: CALCIUM GLUCONATE
     Dosage: 2.2 UNK
     Route: 042
     Dates: start: 20190708, end: 20190708
  10. MAGNESIUM SULFATE [Concomitant]
     Active Substance: MAGNESIUM SULFATE
     Dosage: 10 UNK
     Route: 042
     Dates: start: 20190705, end: 20190707
  11. ALBUTEROL [Concomitant]
     Active Substance: ALBUTEROL
     Dosage: 10 MILLIGRAM
     Route: 045
     Dates: start: 20190708, end: 20190708
  12. DOCUSATE\SENNOSIDES [Concomitant]
     Active Substance: DOCUSATE\SENNOSIDES
     Dosage: 2 UNK
     Route: 048
     Dates: start: 20190709, end: 20190805
  13. HYDROMORPHONE [Concomitant]
     Active Substance: HYDROMORPHONE
     Dosage: 3 MILLIGRAM, 2.5 MILLIGRAM, LIQUID QID AND UNK, UNK AS NECESSARY
     Route: 048
     Dates: start: 20190708, end: 20190812
  14. MOVICOL [Concomitant]
     Active Substance: POLYETHYLENE GLYCOL 3350\POTASSIUM CHLORIDE\SODIUM BICARBONATE\SODIUM CHLORIDE
     Dosage: 1 UNK
     Route: 048
     Dates: start: 20190709, end: 20190812
  15. DICLOFENAC [Concomitant]
     Active Substance: DICLOFENAC
     Dosage: 1 UNK
     Route: 061
     Dates: start: 20190708, end: 20190812
  16. MAGNESIUM [Concomitant]
     Active Substance: MAGNESIUM
     Dosage: 800 MILLIGRAM
     Route: 048
     Dates: start: 20190709, end: 20190805
  17. METOCLOPRAMIDE [Concomitant]
     Active Substance: METOCLOPRAMIDE
     Dosage: 10 MILLIGRAM
     Route: 048
     Dates: start: 20190709, end: 20190812
  18. DIAZEPAM [Concomitant]
     Active Substance: DIAZEPAM
     Dosage: 5 MILLIGRAM
     Route: 048
     Dates: start: 20190613, end: 20190812
  19. FLUCONAZOLE [Concomitant]
     Active Substance: FLUCONAZOLE
     Dosage: 200-400 MILLIGRAM
     Route: 048
     Dates: start: 20170825, end: 20190808
  20. DEXAMETHASONE [Concomitant]
     Active Substance: DEXAMETHASONE
     Indication: Diffuse large B-cell lymphoma
     Dosage: 20 MILLIGRAM
     Route: 042
     Dates: start: 20190711
  21. NYSTATIN [Concomitant]
     Active Substance: NYSTATIN
     Dosage: 1-5 MILLILITER
     Route: 061
     Dates: start: 20190801, end: 20190805

REACTIONS (3)
  - Hypersomnia [Recovered/Resolved]
  - Disease progression [Fatal]
  - Disease progression [Recovered/Resolved]

NARRATIVE: CASE EVENT DATE: 20190805
